FAERS Safety Report 22226589 (Version 1)
Quarter: 2023Q2

REPORT INFORMATION
  Report Type: Report from Study
  Country: US (occurrence: US)
  Receive Date: 20230419
  Receipt Date: 20230419
  Transmission Date: 20230722
  Serious: Yes (Hospitalization)
  Sender: FDA-Public Use
  Company Number: US-ABBVIE-4732422

PATIENT
  Sex: Female

DRUGS (1)
  1. SKYRIZI [Suspect]
     Active Substance: RISANKIZUMAB-RZAA
     Indication: Psoriasis
     Route: 058
     Dates: start: 20230411

REACTIONS (6)
  - Heart rate decreased [Unknown]
  - Dyspnoea [Unknown]
  - Peripheral swelling [Unknown]
  - Blood potassium increased [Unknown]
  - Dizziness [Unknown]
  - Renal impairment [Unknown]
